FAERS Safety Report 4893746-2 (Version None)
Quarter: 2005Q4

REPORT INFORMATION
  Report Type: 
  Country: None (occurrence: None)
  Receive Date: 20051223
  Receipt Date: 20051027
  Transmission Date: 20060501
  Serious: No
  Sender: FDA-Public Use
  Company Number: 2005PV004259

PATIENT
  Sex: Male

DRUGS (2)
  1. SYMLIN [Suspect]
     Indication: DIABETES MELLITUS INSULIN-DEPENDENT
     Dosage: SC
     Route: 058
     Dates: start: 20050926, end: 20050929
  2. INSULIN PUMP [Concomitant]

REACTIONS (2)
  - INFLUENZA LIKE ILLNESS [None]
  - MICTURITION URGENCY [None]
